FAERS Safety Report 16321123 (Version 1)
Quarter: 2019Q2

REPORT INFORMATION
  Report Type: Spontaneous
  Country: US (occurrence: US)
  Receive Date: 20190516
  Receipt Date: 20190516
  Transmission Date: 20190711
  Serious: No
  Sender: FDA-Public Use
  Company Number: US-PFIZER INC-2019207499

PATIENT
  Age: 55 Year
  Sex: Female
  Weight: 117 kg

DRUGS (5)
  1. AMLODIPINE AND OLMESARTAN MEDOXOMIL [Concomitant]
     Active Substance: AMLODIPINE BESYLATE\OLMESARTAN MEDOXOMIL
     Indication: HYPERTENSION
     Dosage: UNK UNK, 1X/DAY  (5 MG OF AMLODIPINE AND 20 MG OF THE OTHER ONCE A DAY)
     Dates: start: 201801
  2. CELEBREX [Concomitant]
     Active Substance: CELECOXIB
     Indication: PAIN
     Dosage: UNK UNK, AS NEEDED (NOT CONTINUOUSLY)
     Dates: end: 201806
  3. CELEBREX [Concomitant]
     Active Substance: CELECOXIB
     Indication: ARTHRALGIA
  4. CELECOXIB. [Suspect]
     Active Substance: CELECOXIB
     Indication: PAIN
  5. CELECOXIB. [Suspect]
     Active Substance: CELECOXIB
     Indication: ARTHRALGIA
     Dosage: UNK

REACTIONS (1)
  - Drug ineffective [Unknown]
